FAERS Safety Report 11663390 (Version 1)
Quarter: 2015Q4

REPORT INFORMATION
  Report Type: Spontaneous
  Country: US (occurrence: None)
  Receive Date: 20151026
  Receipt Date: 20151026
  Transmission Date: 20160304
  Serious: Yes (Disabling, Other)
  Sender: FDA-Public Use
  Company Number: None

PATIENT
  Age: 35 Year
  Sex: Male
  Weight: 77.11 kg

DRUGS (1)
  1. TESTOSTERONE GEL [Suspect]
     Active Substance: TESTOSTERONE
     Indication: HYPOGONADISM
     Dosage: 1 PACKET PE3R DAY, APPLIED TO A SURFACE, USUASLLY THE SKIN
     Dates: start: 20151019

REACTIONS (11)
  - Product substitution issue [None]
  - Product container seal issue [None]
  - Application site fissure [None]
  - Product physical consistency issue [None]
  - Application site discolouration [None]
  - Product formulation issue [None]
  - Product packaging quantity issue [None]
  - Product container issue [None]
  - Dermatitis contact [None]
  - Application site exfoliation [None]
  - Product label confusion [None]

NARRATIVE: CASE EVENT DATE: 20151019
